FAERS Safety Report 25578445 (Version 2)
Quarter: 2025Q3

REPORT INFORMATION
  Report Type: Report from Study
  Country: US (occurrence: US)
  Receive Date: 20250718
  Receipt Date: 20250721
  Transmission Date: 20251020
  Serious: Yes (Other)
  Sender: BRISTOL-MYERS SQUIBB COMPANY
  Company Number: US-BRISTOL-MYERS SQUIBB COMPANY-2025-101263

PATIENT
  Age: 76 Year
  Sex: Male
  Weight: 61.23 kg

DRUGS (1)
  1. ELIQUIS [Suspect]
     Active Substance: APIXABAN
     Indication: Atrial fibrillation
     Route: 048
     Dates: start: 2018

REACTIONS (7)
  - Hernia [Unknown]
  - Gallbladder disorder [Unknown]
  - Bile duct stone [Unknown]
  - Conduction disorder [Unknown]
  - Cardiac disorder [Unknown]
  - Post procedural haematoma [Unknown]
  - Tooth disorder [Unknown]
